FAERS Safety Report 5753463-3 (Version None)
Quarter: 2008Q2

REPORT INFORMATION
  Report Type: 
  Country: None (occurrence: None)
  Receive Date: 20080527
  Receipt Date: 20080513
  Transmission Date: 20081010
  Serious: Yes (Hospitalization)
  Sender: FDA-Public Use
  Company Number: GXKR2008US04452

PATIENT
  Age: 17 Year
  Sex: Male

DRUGS (7)
  1. RIFAMPICIN [Suspect]
     Indication: TUBERCULOSIS
  2. ABACAVIR [Suspect]
     Indication: ANTIRETROVIRAL THERAPY
  3. ISONIAZID [Concomitant]
  4. ETHAMBUTOL HYDROCHLORIDE [Concomitant]
  5. LAMIVUDINE [Suspect]
     Indication: ANTIRETROVIRAL THERAPY
  6. STAVUDINE [Suspect]
     Indication: ANTIRETROVIRAL THERAPY
  7. PYRAZINAMIDE [Concomitant]

REACTIONS (12)
  - BLOOD PRESSURE SYSTOLIC INSPIRATORY DECREASED [None]
  - CARDIAC TAMPONADE [None]
  - CHILLS [None]
  - DRUG INTERACTION [None]
  - HAEMORRHAGE [None]
  - IMMUNE RECONSTITUTION SYNDROME [None]
  - INFLAMMATION [None]
  - JUGULAR VEIN DISTENSION [None]
  - PLEURITIC PAIN [None]
  - PYREXIA [None]
  - TYPE IV HYPERSENSITIVITY REACTION [None]
  - WEIGHT INCREASED [None]
